FAERS Safety Report 23808994 (Version 1)
Quarter: 2024Q2

REPORT INFORMATION
  Report Type: Other
  Country: US (occurrence: US)
  Receive Date: 20240502
  Receipt Date: 20240502
  Transmission Date: 20240716
  Serious: Yes (Death, Hospitalization)
  Sender: FDA-Public Use
  Company Number: US-Bion-012952

PATIENT
  Age: 17 Month
  Sex: Male

DRUGS (5)
  1. AZITHROMYCIN [Suspect]
     Active Substance: AZITHROMYCIN
     Indication: Meningoencephalitis amoebic
  2. DEXAMETHASONE [Concomitant]
     Active Substance: DEXAMETHASONE
     Indication: Meningoencephalitis amoebic
  3. RIFAMPIN [Concomitant]
     Active Substance: RIFAMPIN
     Indication: Meningoencephalitis amoebic
  4. AMPHOTERICIN B [Concomitant]
     Active Substance: AMPHOTERICIN B
     Indication: Meningoencephalitis amoebic
  5. FLUCONAZOLE [Concomitant]
     Active Substance: FLUCONAZOLE
     Indication: Meningoencephalitis amoebic

REACTIONS (1)
  - Drug ineffective for unapproved indication [Fatal]
